FAERS Safety Report 19457621 (Version 1)
Quarter: 2021Q2

REPORT INFORMATION
  Report Type: Other
  Country: CN (occurrence: CN)
  Receive Date: 20210624
  Receipt Date: 20210624
  Transmission Date: 20210717
  Serious: Yes (Other)
  Sender: FDA-Public Use
  Company Number: CN-ROCHE-2851208

PATIENT

DRUGS (3)
  1. GEFITINIB. [Suspect]
     Active Substance: GEFITINIB
     Indication: LUNG ADENOCARCINOMA
     Dosage: 250 MG PER DAY
     Route: 065
  2. ERLOTINIB [Suspect]
     Active Substance: ERLOTINIB
     Indication: LUNG ADENOCARCINOMA
     Dosage: 150 MG PER DAY
     Route: 065
  3. BEVACIZUMAB. [Suspect]
     Active Substance: BEVACIZUMAB
     Indication: LUNG ADENOCARCINOMA
     Route: 065

REACTIONS (11)
  - Mouth ulceration [Unknown]
  - Glomerular filtration rate decreased [Unknown]
  - Hypertension [Unknown]
  - Blood alkaline phosphatase increased [Recovered/Resolved]
  - Rash [Unknown]
  - Diarrhoea [Unknown]
  - Protein urine present [Unknown]
  - Pruritus [Unknown]
  - Paronychia [Unknown]
  - Blood bilirubin increased [Recovered/Resolved]
  - Transaminases increased [Recovered/Resolved]
